FAERS Safety Report 5720114-3 (Version None)
Quarter: 2008Q2

REPORT INFORMATION
  Report Type: 
  Country: None (occurrence: None)
  Receive Date: 20080428
  Receipt Date: 20080212
  Transmission Date: 20081010
  Serious: No
  Sender: FDA-Public Use
  Company Number: US-AMGEN-US265115

PATIENT
  Sex: Male

DRUGS (2)
  1. SENSIPAR [Suspect]
     Indication: HYPERPARATHYROIDISM SECONDARY
     Route: 065
     Dates: start: 20070101
  2. UNSPECIFIED ANTIHYPERTENSIVE AGENT [Suspect]
     Route: 065

REACTIONS (1)
  - BLOOD PRESSURE INCREASED [None]
